FAERS Safety Report 23783665 (Version 1)
Quarter: 2024Q2

REPORT INFORMATION
  Report Type: Spontaneous
  Country: DE (occurrence: DE)
  Receive Date: 20240425
  Receipt Date: 20240425
  Transmission Date: 20240716
  Serious: Yes (Other)
  Sender: FDA-Public Use
  Company Number: DE-BAXTER-2024BAX016653

PATIENT
  Sex: Male

DRUGS (7)
  1. ADRIAMYCIN [Suspect]
     Active Substance: DOXORUBICIN HYDROCHLORIDE
     Indication: Hodgkin^s disease nodular sclerosis stage III
     Dosage: BEACOPP REGIMEN, INITIATED WITH FIVE CYCLES ROUTE OF ADMIN (FREE TEXT): UNKNOWN ROUTE
     Route: 065
  2. BLEOMYCIN [Suspect]
     Active Substance: BLEOMYCIN SULFATE
     Indication: Hodgkin^s disease nodular sclerosis stage III
     Dosage: BEACOPP REGIMEN, INITIATED WITH FIVE CYCLES ROUTE OF ADMIN (FREE TEXT): UNKNOWN ROUTE
     Route: 065
  3. CYCLOPHOSPHAMIDE [Suspect]
     Active Substance: CYCLOPHOSPHAMIDE
     Indication: Hodgkin^s disease nodular sclerosis stage III
     Dosage: BEACOPP REGIMEN, INITIATED WITH FIVE CYCLES ROUTE OF ADMIN (FREE TEXT): UNKNOWN ROUTE
     Route: 065
  4. ETOPOSIDE [Suspect]
     Active Substance: ETOPOSIDE
     Indication: Hodgkin^s disease nodular sclerosis stage III
     Dosage: BEACOPP REGIMEN, INITIATED WITH FIVE CYCLES ROUTE OF ADMIN (FREE TEXT): UNKNOWN ROUTE
     Route: 065
  5. PREDNISOLONE [Suspect]
     Active Substance: PREDNISOLONE
     Indication: Hodgkin^s disease nodular sclerosis stage III
     Dosage: BEACOPP REGIMEN, INITIATED WITH FIVE CYCLES ROUTE OF ADMIN (FREE TEXT): UNKNOWN ROUTE
     Route: 065
  6. PROCARBAZINE [Suspect]
     Active Substance: PROCARBAZINE
     Indication: Hodgkin^s disease nodular sclerosis stage III
     Dosage: BEACOPP REGIMEN, INITIATED WITH FIVE CYCLES ROUTE OF ADMIN (FREE TEXT): UNKNOWN ROUTE
     Route: 065
  7. VINCRISTINE [Suspect]
     Active Substance: VINCRISTINE
     Indication: Hodgkin^s disease nodular sclerosis stage III
     Dosage: BEACOPP REGIMEN, INITIATED WITH FIVE CYCLES ROUTE OF ADMIN (FREE TEXT): UNKNOWN ROUTE
     Route: 065

REACTIONS (2)
  - Pneumonia [Unknown]
  - Urinary tract infection [Unknown]
